FAERS Safety Report 26097120 (Version 2)
Quarter: 2025Q4

REPORT INFORMATION
  Report Type: Spontaneous
  Country: EU (occurrence: EU)
  Receive Date: 20251127
  Receipt Date: 20251205
  Transmission Date: 20260118
  Serious: Yes (Hospitalization, Other)
  Sender: ROCHE
  Company Number: None

PATIENT
  Age: 6 Year

DRUGS (4)
  1. TOCILIZUMAB [Interacting]
     Active Substance: TOCILIZUMAB
     Indication: Febrile infection-related epilepsy syndrome
     Route: 065
  2. PROPOFOL [Interacting]
     Active Substance: PROPOFOL
     Indication: Febrile infection-related epilepsy syndrome
     Route: 065
  3. METHYLPREDNISOLONE [Concomitant]
     Active Substance: METHYLPREDNISOLONE
  4. LEVETIRACETAM [Concomitant]
     Active Substance: LEVETIRACETAM

REACTIONS (5)
  - Hypertriglyceridaemia [Unknown]
  - Pancreatitis [Unknown]
  - Dyslipidaemia [Unknown]
  - Food interaction [Unknown]
  - Drug interaction [Unknown]
